FAERS Safety Report 20496438 (Version 1)
Quarter: 2022Q1

REPORT INFORMATION
  Report Type: Spontaneous
  Country: US (occurrence: US)
  Receive Date: 20220221
  Receipt Date: 20220221
  Transmission Date: 20220423
  Serious: Yes (Death, Hospitalization, Other)
  Sender: FDA-Public Use
  Company Number: US-PFIZER INC-202200254136

PATIENT
  Age: 10 Month
  Sex: Male

DRUGS (1)
  1. BENZONATATE [Suspect]
     Active Substance: BENZONATATE
     Dosage: UNK
     Route: 048

REACTIONS (3)
  - Accidental exposure to product [Fatal]
  - Death [Fatal]
  - Toxicity to various agents [Fatal]

NARRATIVE: CASE EVENT DATE: 20200101
